FAERS Safety Report 14479777 (Version 2)
Quarter: 2018Q1

REPORT INFORMATION
  Report Type: Spontaneous
  Country: US (occurrence: US)
  Receive Date: 20180202
  Receipt Date: 20180226
  Transmission Date: 20180509
  Serious: Yes (Death, Other)
  Sender: FDA-Public Use
  Company Number: PHEH2018US003674

PATIENT
  Age: 11 Year
  Sex: Female
  Weight: 47.7 kg

DRUGS (1)
  1. KYMRIAH [Suspect]
     Active Substance: TISAGENLECLEUCEL
     Indication: ACUTE LYMPHOCYTIC LEUKAEMIA RECURRENT
     Dosage: 1 DF, ONCE/SINGLE
     Route: 042
     Dates: start: 20171223

REACTIONS (14)
  - Acute lymphocytic leukaemia recurrent [Fatal]
  - Malignant neoplasm progression [Fatal]
  - Acute abdomen [Unknown]
  - Abdominal compartment syndrome [Unknown]
  - Renal impairment [Unknown]
  - Seizure [Unknown]
  - Acute kidney injury [Unknown]
  - Fluid overload [Unknown]
  - Multiple organ dysfunction syndrome [Fatal]
  - Acute respiratory failure [Unknown]
  - Neurological decompensation [Unknown]
  - Cytokine release syndrome [Unknown]
  - Hypotension [Unknown]
  - Staphylococcal sepsis [Fatal]

NARRATIVE: CASE EVENT DATE: 20171227
